FAERS Safety Report 13111092 (Version 1)
Quarter: 2017Q1

REPORT INFORMATION
  Report Type: Report from Study
  Country: UG (occurrence: UG)
  Receive Date: 20170112
  Receipt Date: 20170112
  Transmission Date: 20170428
  Serious: Yes (Death, Hospitalization, Other)
  Sender: FDA-Public Use
  Company Number: UG-MYLANLABS-2017M1001076

PATIENT

DRUGS (5)
  1. RIFAMPICIN [Suspect]
     Active Substance: RIFAMPIN
     Indication: PRODUCT USED FOR UNKNOWN INDICATION
     Dosage: 10 MG/KG FOR 8 WEEKS (INTENSIVE PHASE) AND FOR AN ADDITIONAL 16 WEEKS (CONTINUATION PHASE)
     Route: 065
  2. PYRAZINAMIDE. [Suspect]
     Active Substance: PYRAZINAMIDE
     Indication: PRODUCT USED FOR UNKNOWN INDICATION
     Dosage: 10 MG/KG FOR 8 WEEKS (INTENSIVE PHASE)
     Route: 065
  3. ETHAMBUTOL [Suspect]
     Active Substance: ETHAMBUTOL HYDROCHLORIDE
     Indication: PRODUCT USED FOR UNKNOWN INDICATION
     Dosage: 15 MG/KG FOR 8 WEEKS (INTENSIVE PHASE)
     Route: 065
  4. PYRIDOXINE [Suspect]
     Active Substance: PYRIDOXINE
     Indication: PRODUCT USED FOR UNKNOWN INDICATION
     Dosage: 50 MG FOR 8 WEEKS (INTENSIVE PHASE) AND AND FOR AN ADDITIONAL 16 WEEKS (CONTINUATION PHASE)
     Route: 048
  5. ISONIAZID. [Suspect]
     Active Substance: ISONIAZID
     Indication: PRODUCT USED FOR UNKNOWN INDICATION
     Dosage: 5 MG/KG FOR 8 WEEKS (INTENSIVE PHASE) AND FOR AN ADDITIONAL 16 WEEKS (CONTINUATION PHASE)
     Route: 065

REACTIONS (1)
  - Drug-induced liver injury [Fatal]
